FAERS Safety Report 17863714 (Version 2)
Quarter: 2020Q3

REPORT INFORMATION
  Report Type: Report from Study
  Country: JP (occurrence: JP)
  Receive Date: 20200604
  Receipt Date: 20200721
  Transmission Date: 20201103
  Serious: Yes (Life-Threatening, Other)
  Sender: FDA-Public Use
  Company Number: JP-AMGEN-JPNCT2020086396

PATIENT
  Age: 79 Year
  Sex: Male

DRUGS (10)
  1. DARBEPOETIN ALFA [Suspect]
     Active Substance: DARBEPOETIN ALFA
     Dosage: 180 UG, 1X/WEEK
     Route: 058
     Dates: start: 20171219, end: 20171226
  2. EXJADE [Concomitant]
     Active Substance: DEFERASIROX
     Indication: IRON OVERLOAD
     Dosage: 1000 MG
     Route: 048
     Dates: start: 20180206, end: 20180213
  3. JADENU [Concomitant]
     Active Substance: DEFERASIROX
     Dosage: 540 MG
     Route: 048
     Dates: start: 20180404, end: 20180529
  4. DARBEPOETIN ALFA [Suspect]
     Active Substance: DARBEPOETIN ALFA
     Dosage: 180 UG, 1X/WEEK
     Route: 058
     Dates: start: 20181009, end: 20181225
  5. JADENU [Concomitant]
     Active Substance: DEFERASIROX
     Dosage: 720 MG
     Route: 048
     Dates: start: 20180530
  6. DARBEPOETIN ALFA [Suspect]
     Active Substance: DARBEPOETIN ALFA
     Dosage: 180 UG, 1X/WEEK
     Route: 058
     Dates: start: 20180417, end: 20180925
  7. JADENU [Concomitant]
     Active Substance: DEFERASIROX
     Indication: IRON OVERLOAD
     Dosage: 450 MG
     Route: 048
     Dates: start: 20180214, end: 20180403
  8. DARBEPOETIN ALFA [Suspect]
     Active Substance: DARBEPOETIN ALFA
     Indication: MYELODYSPLASTIC SYNDROME
     Dosage: 180 UG, 1X/WEEK
     Route: 058
     Dates: start: 20190108, end: 20190219
  9. DARBEPOETIN ALFA [Suspect]
     Active Substance: DARBEPOETIN ALFA
     Dosage: 180 UG, 1X/WEEK
     Route: 058
     Dates: start: 20180109, end: 20180403
  10. GLAKAY [Concomitant]
     Active Substance: MENATETRENONE
     Indication: MYELODYSPLASTIC SYNDROME
     Dosage: 45 MG
     Route: 048
     Dates: start: 20171010, end: 20190502

REACTIONS (1)
  - Acute leukaemia [Not Recovered/Not Resolved]

NARRATIVE: CASE EVENT DATE: 20190108
